FAERS Safety Report 25172514 (Version 1)
Quarter: 2025Q2

REPORT INFORMATION
  Report Type: Spontaneous
  Country: US (occurrence: None)
  Receive Date: 20250407
  Receipt Date: 20250407
  Transmission Date: 20250716
  Serious: Yes (Death)
  Sender: FDA-CTU
  Company Number: None

PATIENT
  Age: 58 Year
  Sex: Female
  Weight: 44.1 kg

DRUGS (5)
  1. TARLATAMAB [Suspect]
     Active Substance: TARLATAMAB
     Indication: Medullary thyroid cancer
     Dosage: OTHER FREQUENCY : EVERY 2 WEEKS;?
     Route: 042
     Dates: start: 20241022, end: 20241203
  2. GABAPENTIN [Concomitant]
     Active Substance: GABAPENTIN
  3. LEVETIRACETAM [Concomitant]
     Active Substance: LEVETIRACETAM
  4. MEMANTINE [Concomitant]
     Active Substance: MEMANTINE
  5. LEVOTHYROXINE [Concomitant]
     Active Substance: LEVOTHYROXINE

REACTIONS (4)
  - Immune effector cell-associated neurotoxicity syndrome [None]
  - Large intestine perforation [None]
  - Enteritis [None]
  - Delayed recovery from anaesthesia [None]

NARRATIVE: CASE EVENT DATE: 20250312
